FAERS Safety Report 8027338-3 (Version None)
Quarter: 2012Q1

REPORT INFORMATION
  Report Type: 
  Country: None (occurrence: None)
  Receive Date: 20120106
  Receipt Date: 20111228
  Transmission Date: 20120608
  Serious: Yes (Hospitalization, Other)
  Sender: FDA-Public Use
  Company Number: US-BRISTOL-MYERS SQUIBB COMPANY-16273427

PATIENT
  Age: 65 Year
  Sex: Male
  Weight: 85 kg

DRUGS (13)
  1. DEXAMETHASONE [Suspect]
     Indication: PROSTATE CANCER
     Route: 042
     Dates: start: 20101114, end: 20110526
  2. MULTI-VITAMINS [Concomitant]
     Dates: start: 20081201
  3. CALCIUM CARBONATE [Concomitant]
     Dates: start: 20081201
  4. PERCOCET [Concomitant]
     Dates: start: 20110929
  5. FLU VACCINE [Concomitant]
     Dates: start: 20110929
  6. PLACEBO [Suspect]
     Indication: PROSTATE CANCER
     Dosage: NO OF COURSES: 18
     Route: 048
     Dates: start: 20101115
  7. DASATINIB [Suspect]
     Indication: PROSTATE CANCER
     Dosage: NO OF COURSES: 18
     Route: 048
     Dates: start: 20101115
  8. PREDNISONE TAB [Suspect]
     Indication: PROSTATE CANCER
     Dosage: NUMBER OF COURSES: 18 05NOV2011-18AUG2011 18AUG2011-ONGOING
     Route: 048
     Dates: start: 20101115
  9. ZOMETA [Concomitant]
     Dates: start: 20081201
  10. MOTRIN [Concomitant]
     Dates: start: 20110929
  11. HYDROCHLOROTHIAZIDE [Concomitant]
     Dates: start: 20100616
  12. DOCETAXEL [Suspect]
     Indication: PROSTATE CANCER
     Dates: start: 20101114, end: 20110526
  13. LUPRON [Concomitant]
     Dates: start: 20081201

REACTIONS (2)
  - SQUAMOUS CELL CARCINOMA OF SKIN [None]
  - ATRIAL FIBRILLATION [None]
